FAERS Safety Report 4630670-4 (Version None)
Quarter: 2005Q2

REPORT INFORMATION
  Report Type: 
  Country: None (occurrence: None)
  Receive Date: 20050408
  Receipt Date: 20050328
  Transmission Date: 20051028
  Serious: Yes (Death, Hospitalization)
  Sender: FDA-Public Use
  Company Number: JP-JNJFOC-20050304267

PATIENT
  Sex: Male
  Weight: 50 kg

DRUGS (5)
  1. RISPERDAL [Suspect]
     Route: 049
     Dates: start: 20050305, end: 20050307
  2. RISPERDAL [Suspect]
     Indication: PERSECUTORY DELUSION
     Route: 049
     Dates: start: 20050305, end: 20050307
  3. ASPIRIN DIALUMINATE [Concomitant]
     Route: 049
     Dates: start: 20050305, end: 20050307
  4. ASPIRIN DIALUMINATE [Concomitant]
     Route: 049
     Dates: start: 20050305, end: 20050307
  5. ASPIRIN DIALUMINATE [Concomitant]
     Indication: CEREBROVASCULAR ACCIDENT PROPHYLAXIS
     Route: 049
     Dates: start: 20050305, end: 20050307

REACTIONS (17)
  - AGGRESSION [None]
  - ANGER [None]
  - ARRHYTHMIA [None]
  - CEREBRAL INFARCTION [None]
  - CONFUSIONAL STATE [None]
  - DEATH [None]
  - DEMENTIA [None]
  - ELECTROENCEPHALOGRAM ABNORMAL [None]
  - FAECAL INCONTINENCE [None]
  - HAEMATEMESIS [None]
  - MEMORY IMPAIRMENT [None]
  - NEUROLEPTIC MALIGNANT SYNDROME [None]
  - PARKINSON'S DISEASE [None]
  - PERSECUTORY DELUSION [None]
  - RENAL FAILURE ACUTE [None]
  - SLEEP DISORDER [None]
  - URINARY INCONTINENCE [None]
